FAERS Safety Report 5444999-3 (Version None)
Quarter: 2007Q3

REPORT INFORMATION
  Report Type: 
  Country: None (occurrence: None)
  Receive Date: 20070906
  Receipt Date: 20070824
  Transmission Date: 20080115
  Serious: Yes (Other)
  Sender: FDA-Public Use
  Company Number: US-ROCHE-508878

PATIENT
  Age: 42 Year
  Sex: Female

DRUGS (2)
  1. KLONOPIN [Suspect]
     Indication: ANXIETY
     Dosage: STARTED IN 1990 OR 1991; INDICATION IS FOR ANXIETY AND PANIC ATTACKS
     Route: 065
  2. CLONAZEPAM (NON-ROCHE) [Suspect]
     Indication: DRUG USE FOR UNKNOWN INDICATION
     Route: 065
     Dates: end: 20060801

REACTIONS (8)
  - ANXIETY [None]
  - DRUG EFFECT DECREASED [None]
  - DRUG WITHDRAWAL SYNDROME [None]
  - INFECTION [None]
  - LYME DISEASE [None]
  - SEPSIS [None]
  - SOMATOFORM DISORDER [None]
  - STAPHYLOCOCCAL INFECTION [None]
